FAERS Safety Report 19233335 (Version 2)
Quarter: 2021Q2

REPORT INFORMATION
  Report Type: Report from Study
  Country: US (occurrence: US)
  Receive Date: 20210507
  Receipt Date: 20210629
  Transmission Date: 20210717
  Serious: Yes (Other)
  Sender: FDA-Public Use
  Company Number: NVSC2021US095099

PATIENT
  Sex: Female

DRUGS (3)
  1. KISQALI [Suspect]
     Active Substance: RIBOCICLIB
     Dosage: 600 MG, QD (3 TABLETS OF 200 MG BY MOUTH DAILY THEN REST FOR 7 DAYS EVERY 28 DAY CYCLE)
     Route: 048
     Dates: start: 20210412
  2. KISQALI [Suspect]
     Active Substance: RIBOCICLIB
     Indication: THROMBOCYTOPENIA
     Dosage: 600 MG, QD (21 DAYS WITH 7 DAYS OFF)
     Route: 048
  3. KISQALI [Suspect]
     Active Substance: RIBOCICLIB
     Indication: BREAST CANCER FEMALE
     Dosage: 600 MG, QD (FOR 18 NOT 21) DAYS WITH 10 DAYS OFF)
     Route: 048

REACTIONS (5)
  - Thrombocytopenia [Recovering/Resolving]
  - Headache [Recovering/Resolving]
  - Inappropriate schedule of product administration [Unknown]
  - Platelet count decreased [Unknown]
  - Diplopia [Not Recovered/Not Resolved]
